FAERS Safety Report 22654815 (Version 1)
Quarter: 2023Q2

REPORT INFORMATION
  Report Type: Report from Study
  Country: TW (occurrence: TW)
  Receive Date: 20230629
  Receipt Date: 20230629
  Transmission Date: 20230721
  Serious: Yes (Death)
  Sender: FDA-Public Use
  Company Number: TW-JNJFOC-20230662539

PATIENT
  Age: 66 Year
  Sex: Male

DRUGS (1)
  1. TREMFYA [Suspect]
     Active Substance: GUSELKUMAB
     Indication: Psoriasis
     Dosage: 100 MIICROGRAM
     Route: 058
     Dates: start: 20200619, end: 20230426

REACTIONS (1)
  - Malignant peritoneal neoplasm [Fatal]
